FAERS Safety Report 10483841 (Version 1)
Quarter: 2014Q3

REPORT INFORMATION
  Report Type: Spontaneous
  Country: US (occurrence: None)
  Receive Date: 20140930
  Receipt Date: 20140930
  Transmission Date: 20150326
  Serious: Yes (Hospitalization)
  Sender: FDA-Public Use
  Company Number: None

PATIENT
  Age: 67 Year
  Sex: Female

DRUGS (5)
  1. HMF PROBIOTIC CAPSULES [Concomitant]
  2. TRICICLINE [Concomitant]
  3. HCL PEPSIN [Concomitant]
  4. VITAMINS [Concomitant]
     Active Substance: VITAMINS
  5. AMEBA/FLUKE DETOX [Suspect]
     Active Substance: HOMEOPATHICS
     Dates: start: 20120206, end: 20120220

REACTIONS (5)
  - Influenza like illness [None]
  - Syncope [None]
  - Rash generalised [None]
  - Hepatic failure [None]
  - Eosinophilia [None]

NARRATIVE: CASE EVENT DATE: 20120415
